FAERS Safety Report 9190165 (Version 1)
Quarter: 2013Q1

REPORT INFORMATION
  Report Type: Spontaneous
  Country: US (occurrence: None)
  Receive Date: 20130325
  Receipt Date: 20130325
  Transmission Date: 20140127
  Serious: Yes (Other)
  Sender: FDA-Public Use
  Company Number: None

PATIENT
  Sex: Male
  Weight: 95.26 kg

DRUGS (3)
  1. ZOLOFT [Suspect]
     Indication: DEPRESSION
     Dosage: 125MG?? DAILY ORAL
     Route: 048
     Dates: start: 2009, end: 2012
  2. LYVOXEL [Concomitant]
  3. IBUPROFEN [Concomitant]

REACTIONS (4)
  - Pruritus [None]
  - Pruritus [None]
  - Skin discolouration [None]
  - Poor quality sleep [None]
